FAERS Safety Report 25151898 (Version 1)
Quarter: 2025Q2

REPORT INFORMATION
  Report Type: Report from Study
  Country: US (occurrence: US)
  Receive Date: 20250402
  Receipt Date: 20250402
  Transmission Date: 20250717
  Serious: Yes (Hospitalization)
  Sender: PFIZER
  Company Number: US-PFIZER INC-PV202500039251

PATIENT
  Age: 56 Year
  Sex: Female

DRUGS (1)
  1. BRAFTOVI [Suspect]
     Active Substance: ENCORAFENIB

REACTIONS (5)
  - Hypertension [Unknown]
  - Glossodynia [Unknown]
  - Tongue erythema [Unknown]
  - Oral pain [Unknown]
  - Constipation [Unknown]

NARRATIVE: CASE EVENT DATE: 20250331
